FAERS Safety Report 4701296-9 (Version None)
Quarter: 2005Q2

REPORT INFORMATION
  Report Type: 
  Country: None (occurrence: None)
  Receive Date: 20050628
  Receipt Date: 20050621
  Transmission Date: 20051028
  Serious: Yes (Death)
  Sender: FDA-Public Use
  Company Number: US-BRACCO-BDI-007318

PATIENT
  Age: 82 Year
  Sex: Male

DRUGS (5)
  1. ISOVUE [Suspect]
     Route: 042
     Dates: start: 20050620, end: 20050620
  2. ISOVUE [Suspect]
     Route: 042
     Dates: start: 20050620, end: 20050620
  3. METOPROLO [Concomitant]
     Route: 050
     Dates: end: 20050620
  4. ASPIRIN [Concomitant]
     Route: 050
     Dates: end: 20050620
  5. COUMADIN [Concomitant]
     Route: 050
     Dates: end: 20050620

REACTIONS (1)
  - ANAPHYLACTOID REACTION [None]
